FAERS Safety Report 7912130-8 (Version None)
Quarter: 2011Q4

REPORT INFORMATION
  Report Type: 
  Country: None (occurrence: None)
  Receive Date: 20111114
  Receipt Date: 20111107
  Transmission Date: 20120403
  Serious: No
  Sender: FDA-Public Use
  Company Number: US-ALEXION-A201101668

PATIENT
  Sex: Male
  Weight: 43.8 kg

DRUGS (11)
  1. CALCIUM CARBONATE [Concomitant]
     Dosage: UNK
  2. PANTOPRAZOLE [Concomitant]
     Dosage: 40 MG, UNK
  3. HYDRALAZINE HCL [Concomitant]
     Dosage: UNK
  4. AMLODIPINE [Concomitant]
     Dosage: 5 MG, UNK
  5. PREDNISONE [Concomitant]
     Dosage: 1, QOD
     Route: 048
  6. SOLIRIS [Suspect]
     Dosage: 1200 MG, Q2W
     Route: 042
     Dates: start: 20111118
  7. SOLIRIS [Suspect]
     Indication: HAEMOLYTIC URAEMIC SYNDROME
     Dosage: 900 MG, QW
     Route: 042
     Dates: start: 20111014, end: 20111104
  8. LOPERAMIDE HCL [Concomitant]
     Dosage: 6 MG, UNK
  9. URSODIOL [Concomitant]
     Dosage: 300 MG, UNK
  10. SEVELAMER [Concomitant]
     Dosage: 1600 MG, UNK
  11. ENALAPRIL MALEATE [Concomitant]
     Dosage: 10 MG, UNK

REACTIONS (2)
  - MALNUTRITION [None]
  - DEVICE RELATED INFECTION [None]
